FAERS Safety Report 6291240-8 (Version None)
Quarter: 2009Q3

REPORT INFORMATION
  Report Type: 
  Country: None (occurrence: None)
  Receive Date: 20090729
  Receipt Date: 20090729
  Transmission Date: 20100115
  Serious: Yes (Hospitalization)
  Sender: FDA-Public Use
  Company Number: None

PATIENT
  Age: 53 Year
  Sex: Male

DRUGS (11)
  1. LISINOPRIL [Suspect]
     Indication: HYPERTENSION
     Dosage: 10MG DAILY PO
     Route: 048
  2. WARFARIN SODIUM [Concomitant]
  3. THIAMINE HCL [Concomitant]
  4. NEPHROVITE [Concomitant]
  5. CINACALCET [Concomitant]
  6. CALCIUM ACETATE [Concomitant]
  7. PHENYTOIN [Concomitant]
  8. CARVEDILOL [Concomitant]
  9. SIMVASTATIN [Concomitant]
  10. SEVELAMAR [Concomitant]
  11. OLANZAPINE [Concomitant]

REACTIONS (4)
  - ANGIOEDEMA [None]
  - DROOLING [None]
  - DYSPHAGIA [None]
  - SWELLING FACE [None]
